FAERS Safety Report 5742066-2 (Version None)
Quarter: 2008Q2

REPORT INFORMATION
  Report Type: 
  Country: None (occurrence: None)
  Receive Date: 20080514
  Receipt Date: 20080514
  Transmission Date: 20081010
  Serious: Yes (Life-Threatening)
  Sender: FDA-Public Use
  Company Number: None

PATIENT
  Age: 24 Year
  Sex: Female
  Weight: 99.7913 kg

DRUGS (2)
  1. CHANTIX [Suspect]
     Indication: SMOKING CESSATION THERAPY
     Dosage: 1 2 PO
     Route: 048
     Dates: start: 20080425, end: 20080501
  2. CHANTIX [Suspect]
     Dosage: 1 2 PO
     Route: 048
     Dates: start: 20080502, end: 20080505

REACTIONS (9)
  - AGGRESSION [None]
  - ANGER [None]
  - DEPRESSION [None]
  - FAMILY STRESS [None]
  - FEELING ABNORMAL [None]
  - LOSS OF EMPLOYMENT [None]
  - PARTNER STRESS [None]
  - PHYSICAL ASSAULT [None]
  - SUICIDE ATTEMPT [None]
